FAERS Safety Report 12465012 (Version 1)
Quarter: 2016Q2

REPORT INFORMATION
  Report Type: Not Available
  Country: PT (occurrence: PT)
  Receive Date: 20160614
  Receipt Date: 20160614
  Transmission Date: 20160815
  Serious: Yes (Other)
  Sender: FDA-Public Use
  Company Number: PT-ANIPHARMA-2016-PT-000002

PATIENT
  Age: 72 Year
  Sex: Male

DRUGS (2)
  1. VANCOMYCIN HYDROCHLORIDE (NON-SPECIFIC) [Suspect]
     Active Substance: VANCOMYCIN HYDROCHLORIDE
     Dosage: UNKNOWN
     Route: 065
  2. AMIKACIN [Concomitant]
     Active Substance: AMIKACIN
     Dosage: UNKNOWN
     Route: 065

REACTIONS (1)
  - Linear IgA disease [Unknown]
